FAERS Safety Report 13899890 (Version 1)
Quarter: 2017Q3

REPORT INFORMATION
  Report Type: Spontaneous
  Country: US (occurrence: None)
  Receive Date: 20170824
  Receipt Date: 20170824
  Transmission Date: 20171127
  Serious: Yes (Other)
  Sender: FDA-Public Use
  Company Number: None

PATIENT
  Age: 62 Year
  Sex: Female

DRUGS (1)
  1. CORTEF [Suspect]
     Active Substance: HYDROCORTISONE
     Route: 048

REACTIONS (6)
  - Fatigue [None]
  - Myalgia [None]
  - Decreased appetite [None]
  - Dehydration [None]
  - Diarrhoea [None]
  - Product substitution issue [None]
